FAERS Safety Report 8830714 (Version 1)
Quarter: 2012Q4

REPORT INFORMATION
  Report Type: 
  Country: CO (occurrence: CO)
  Receive Date: 20121009
  Receipt Date: 20121009
  Transmission Date: 20130627
  Serious: Yes (Other)
  Sender: FDA-Public Use
  Company Number: CO-JNJFOC-20121000303

PATIENT
  Age: 54 Year
  Sex: Male

DRUGS (2)
  1. REMICADE [Suspect]
     Indication: PSORIASIS
     Dosage: received 16 infliximab doses
     Route: 042
     Dates: start: 201202
  2. REMICADE [Suspect]
     Indication: PSORIASIS
     Route: 042
     Dates: end: 201109

REACTIONS (2)
  - Pustular psoriasis [Unknown]
  - Erythrodermic psoriasis [Unknown]
